FAERS Safety Report 6914071-1 (Version None)
Quarter: 2010Q3

REPORT INFORMATION
  Report Type: 
  Country: None (occurrence: None)
  Receive Date: 20100809
  Receipt Date: 20100804
  Transmission Date: 20110219
  Serious: Yes (Death)
  Sender: FDA-Public Use
  Company Number: PHHY2010JP51493

PATIENT
  Age: 51 Year
  Sex: Female

DRUGS (2)
  1. SIMULECT [Suspect]
     Indication: LIVER TRANSPLANT
     Dosage: 20 MG, UNK
     Route: 042
  2. TACROLIMUS [Concomitant]
     Indication: LIVER TRANSPLANT

REACTIONS (1)
  - VENOOCCLUSIVE DISEASE [None]
